FAERS Safety Report 18686545 (Version 1)
Quarter: 2020Q4

REPORT INFORMATION
  Report Type: Report from Study
  Country: US (occurrence: US)
  Receive Date: 20201230
  Receipt Date: 20201230
  Transmission Date: 20210114
  Serious: Yes (Death, Hospitalization, Disabling)
  Sender: FDA-Public Use
  Company Number: US-JNJFOC-A-NJ2017-163637

PATIENT
  Age: 66 Year
  Sex: Female

DRUGS (4)
  1. OPSUMIT [Suspect]
     Active Substance: MACITENTAN
     Indication: PULMONARY ARTERIAL HYPERTENSION
     Route: 048
     Dates: start: 201404
  2. VELETRI [Suspect]
     Active Substance: EPOPROSTENOL
     Indication: PULMONARY ARTERIAL HYPERTENSION
     Dosage: 13.5 NG/KG, PER MIN
     Route: 042
     Dates: start: 201707
  3. VELETRI [Suspect]
     Active Substance: EPOPROSTENOL
     Indication: PULMONARY VENO-OCCLUSIVE DISEASE
     Dosage: 13 NG/KG, PER MIN
     Route: 042
     Dates: start: 20170711
  4. VELETRI [Suspect]
     Active Substance: EPOPROSTENOL
     Dosage: 14 NG/KG, PER MIN
     Route: 042

REACTIONS (12)
  - Hypoxia [Unknown]
  - Condition aggravated [Unknown]
  - Disability [Unknown]
  - Anxiety [Unknown]
  - Pulmonary arterial hypertension [Fatal]
  - Chest pain [Recovered/Resolved]
  - Dyspnoea [Unknown]
  - Sinusitis [Unknown]
  - Rash [Unknown]
  - Acute respiratory failure [Recovered/Resolved]
  - Lethargy [Unknown]
  - Nausea [Unknown]

NARRATIVE: CASE EVENT DATE: 20171111
